FAERS Safety Report 18177830 (Version 2)
Quarter: 2020Q4

REPORT INFORMATION
  Report Type: Spontaneous
  Country: US (occurrence: US)
  Receive Date: 20200821
  Receipt Date: 20201030
  Transmission Date: 20210113
  Serious: No
  Sender: FDA-Public Use
  Company Number: US-BAUSCH-BL-2020-022816

PATIENT
  Sex: Female

DRUGS (4)
  1. AQUAPHOR [Concomitant]
     Active Substance: PETROLATUM
     Dosage: CURRENTLY USING
     Dates: start: 2020
  2. AQUAPHOR [Concomitant]
     Active Substance: PETROLATUM
     Indication: ACTINIC KERATOSIS
  3. EFUDEX [Suspect]
     Active Substance: FLUOROURACIL
     Indication: ACTINIC KERATOSIS
     Dosage: FOR THE PAST 10 YEARS ON HER ARM, BACK, CHEST LEGS
     Route: 061
     Dates: start: 2010
  4. EFUDEX [Suspect]
     Active Substance: FLUOROURACIL
     Dosage: RECENT REFILL
     Route: 061
     Dates: start: 202006, end: 2020

REACTIONS (3)
  - Pigmentation disorder [Not Recovered/Not Resolved]
  - Papule [Not Recovered/Not Resolved]
  - Product quality issue [Unknown]

NARRATIVE: CASE EVENT DATE: 2020
